FAERS Safety Report 5729253-4 (Version None)
Quarter: 2008Q2

REPORT INFORMATION
  Report Type: 
  Country: None (occurrence: None)
  Receive Date: 20080506
  Receipt Date: 20080424
  Transmission Date: 20081010
  Serious: Yes (Other)
  Sender: FDA-Public Use
  Company Number: JP-PFIZER INC-2008017367

PATIENT
  Sex: Male
  Weight: 41.8 kg

DRUGS (14)
  1. ZITHROMAX [Interacting]
     Indication: NASOPHARYNGITIS
     Route: 048
     Dates: start: 20080215, end: 20080217
  2. ZITHROMAX [Interacting]
     Indication: UPPER RESPIRATORY TRACT INFLAMMATION
  3. ZITHROMAX [Interacting]
     Indication: PNEUMONIA
  4. PANSPORIN [Suspect]
     Indication: PNEUMONIA
     Dosage: DAILY DOSE:1GRAM
     Route: 042
     Dates: start: 20080215, end: 20080217
  5. WARFARIN POTASSIUM [Interacting]
  6. BLOPRESS [Concomitant]
  7. ALDACTONE [Concomitant]
  8. LASIX [Concomitant]
  9. RESPLEN [Concomitant]
  10. ZEOTIN [Concomitant]
  11. ALLOPURINOL [Concomitant]
  12. COMELIAN [Concomitant]
  13. VALPROATE SODIUM [Concomitant]
  14. LAXATIVES [Concomitant]

REACTIONS (3)
  - DRUG INTERACTION [None]
  - HEPATIC FUNCTION ABNORMAL [None]
  - INTERNATIONAL NORMALISED RATIO INCREASED [None]
